FAERS Safety Report 5263541-3 (Version None)
Quarter: 2007Q1

REPORT INFORMATION
  Report Type: 
  Country: None (occurrence: None)
  Receive Date: 20070313
  Receipt Date: 20070228
  Transmission Date: 20070707
  Serious: Yes (Other)
  Sender: FDA-Public Use
  Company Number: PHNU2006DE00521

PATIENT
  Age: 66 Year
  Sex: Male
  Weight: 61 kg

DRUGS (2)
  1. ZOMETA [Suspect]
     Indication: METASTASES TO BONE
     Dosage: 4 MG, QMO
     Route: 042
     Dates: start: 20030428, end: 20050429
  2. TAXOTERE [Suspect]
     Indication: PROSTATE CANCER METASTATIC
     Dates: start: 20030101, end: 20060201

REACTIONS (10)
  - BIOPSY SITE UNSPECIFIED ABNORMAL [None]
  - CHRONIC SINUSITIS [None]
  - DENTAL TREATMENT [None]
  - IMPAIRED HEALING [None]
  - OSTEOMYELITIS CHRONIC [None]
  - OSTEONECROSIS [None]
  - OSTEOTOMY [None]
  - PRIMARY SEQUESTRUM [None]
  - TOOTH DISORDER [None]
  - TOOTH EXTRACTION [None]
